FAERS Safety Report 7334866-2 (Version None)
Quarter: 2011Q1

REPORT INFORMATION
  Report Type: 
  Country: None (occurrence: None)
  Receive Date: 20110301
  Receipt Date: 20110301
  Transmission Date: 20110831
  Serious: No
  Sender: FDA-Public Use
  Company Number: None

PATIENT
  Age: 41 Year
  Sex: Female
  Weight: 90.7194 kg

DRUGS (1)
  1. MIRENA [Suspect]
     Dates: start: 20100501, end: 20110101

REACTIONS (9)
  - NAUSEA [None]
  - WEIGHT INCREASED [None]
  - MIGRAINE [None]
  - MUSCULOSKELETAL STIFFNESS [None]
  - BACK PAIN [None]
  - HYPERTENSION [None]
  - ARTHRALGIA [None]
  - FATIGUE [None]
  - GAIT DISTURBANCE [None]
